FAERS Safety Report 19707795 (Version 1)
Quarter: 2021Q3

REPORT INFORMATION
  Report Type: Spontaneous
  Country: US (occurrence: US)
  Receive Date: 20210817
  Receipt Date: 20210817
  Transmission Date: 20211014
  Serious: No
  Sender: FDA-Public Use
  Company Number: None

PATIENT
  Age: 64 Year
  Sex: Male
  Weight: 98.1 kg

DRUGS (6)
  1. ALVESCO [Suspect]
     Active Substance: CICLESONIDE
     Indication: CHRONIC OBSTRUCTIVE PULMONARY DISEASE
  2. SPIRULENA [Concomitant]
  3. L?LYSINE [Concomitant]
     Active Substance: LYSINE
  4. QUERCETIN/BROMELAIN [Concomitant]
  5. SAW PALMETTO/PYGEUM [Concomitant]
  6. VITAMIN D [Concomitant]
     Active Substance: VITAMIN D NOS

REACTIONS (1)
  - Cataract [None]

NARRATIVE: CASE EVENT DATE: 20210518
